FAERS Safety Report 8397525 (Version 2)
Quarter: 2013Q2

REPORT INFORMATION
  Report Type: Spontaneous
  Country: US (occurrence: None)
  Receive Date: 20111227
  Receipt Date: 20120426
  Transmission Date: 20140414
  Serious: Yes (Other)
  Sender: FDA-Public Use
  Company Number: PHEH2011US010110

PATIENT
  Age: 28 Year
  Sex: Female

DRUGS (1)
  1. GILENYA [Suspect]
     Indication: MULTIPLE SCLEROSIS
     Dosage: 0.5 MG, QD, ORAL, 0.5 MG, DAILY, ORAL
     Route: 048
     Dates: start: 20110512, end: 20111119

REACTIONS (8)
  - NAUSEA [None]
  - AMENORRHOEA [None]
  - BREAST PAIN [None]
  - FATIGUE [None]
  - CHEST PAIN [None]
  - HEADACHE [None]
  - VOMITING [None]
  - Exposure during pregnancy [None]
